FAERS Safety Report 4869209-7 (Version None)
Quarter: 2005Q4

REPORT INFORMATION
  Report Type: 
  Country: None (occurrence: None)
  Receive Date: 20051230
  Receipt Date: 20051219
  Transmission Date: 20060501
  Serious: Yes (Other)
  Sender: FDA-Public Use
  Company Number: PHBS2005US19152

PATIENT
  Sex: Female

DRUGS (2)
  1. DESFERAL [Suspect]
  2. DESFERAL [Suspect]

REACTIONS (2)
  - INJECTION SITE SCAR [None]
  - JUGULAR VEIN THROMBOSIS [None]
